FAERS Safety Report 4902790-8 (Version None)
Quarter: 2006Q1

REPORT INFORMATION
  Report Type: 
  Country: None (occurrence: None)
  Receive Date: 20060207
  Receipt Date: 20060124
  Transmission Date: 20060701
  Serious: Yes (Hospitalization)
  Sender: FDA-Public Use
  Company Number: JP-JPN-A200600296

PATIENT
  Age: 65 Year
  Sex: Female

DRUGS (5)
  1. PAXIL [Suspect]
     Indication: DEPRESSION
     Dosage: 30MG PER DAY
     Route: 048
     Dates: start: 20021210, end: 20060121
  2. SYMMETREL [Concomitant]
     Indication: DEPRESSION
     Dosage: 199.8MG PER DAY
     Route: 048
     Dates: start: 20010626, end: 20060121
  3. UNKNOWN DRUG [Concomitant]
     Route: 065
  4. RHYTHMY [Concomitant]
     Indication: SLEEP DISORDER
     Dosage: 2MG PER DAY
     Route: 048
     Dates: start: 20020402
  5. PURSENNID [Concomitant]
     Indication: CONSTIPATION
     Dosage: 24MG PER DAY
     Route: 048
     Dates: start: 20020402

REACTIONS (10)
  - BLOOD CHLORIDE DECREASED [None]
  - BLOOD CREATININE INCREASED [None]
  - BLOOD POTASSIUM DECREASED [None]
  - CONVULSION [None]
  - DEPRESSED LEVEL OF CONSCIOUSNESS [None]
  - DYSSTASIA [None]
  - HYPONATRAEMIA [None]
  - INAPPROPRIATE ANTIDIURETIC HORMONE SECRETION [None]
  - MALAISE [None]
  - VOMITING [None]
